FAERS Safety Report 11226316 (Version 1)
Quarter: 2015Q2

REPORT INFORMATION
  Report Type: Spontaneous
  Country: RO (occurrence: RO)
  Receive Date: 20150629
  Receipt Date: 20150629
  Transmission Date: 20150821
  Serious: Yes (Life-Threatening, Hospitalization)
  Sender: FDA-Public Use
  Company Number: RO-BAYER-2015-361964

PATIENT
  Age: 17 Year
  Sex: Male

DRUGS (3)
  1. AMOXICILLIN. [Suspect]
     Active Substance: AMOXICILLIN
  2. KETOPROFEN (SYSTEMIC FORMULATION) [Suspect]
     Active Substance: KETOPROFEN
  3. CEFUROXIME. [Suspect]
     Active Substance: CEFUROXIME

REACTIONS (9)
  - Bradycardia [None]
  - Respiration abnormal [None]
  - Toxicity to various agents [None]
  - Mydriasis [None]
  - Polyuria [None]
  - Corneal lesion [None]
  - Intentional product misuse [None]
  - Suicide attempt [None]
  - Coma [None]
